FAERS Safety Report 11540742 (Version 1)
Quarter: 2015Q3

REPORT INFORMATION
  Report Type: Spontaneous
  Country: BE (occurrence: BE)
  Receive Date: 20150923
  Receipt Date: 20150923
  Transmission Date: 20151125
  Serious: Yes (Life-Threatening, Hospitalization, Other)
  Sender: FDA-Public Use
  Company Number: BE-GLAXOSMITHKLINE INC.-BE2015GSK134526

PATIENT
  Age: 16 Year
  Sex: Male
  Weight: 60 kg

DRUGS (3)
  1. LAMICTAL [Suspect]
     Active Substance: LAMOTRIGINE
     Indication: IDIOPATHIC GENERALISED EPILEPSY
     Dosage: PROGRESSIVE INTRODUCTION OF LAMICTAL UP TO 100 MG 2 X/DAY AT THE RATE OF AN INCREASE OF 1/2 TABLET
     Route: 048
     Dates: start: 20150324, end: 20150503
  2. AERIUS [Concomitant]
     Active Substance: DESLORATADINE
     Indication: HOUSE DUST ALLERGY
     Dosage: 5 MG, BID
     Route: 048
  3. DEPAKINE CHRONO [Concomitant]
     Active Substance: VALPROATE SODIUM
     Indication: IDIOPATHIC GENERALISED EPILEPSY
     Dosage: 1 TABLET  IN THE MORNING AND HALF TABLET IN THE EVENING
     Route: 048

REACTIONS (7)
  - Hyperammonaemia [Recovering/Resolving]
  - Drug reaction with eosinophilia and systemic symptoms [Recovering/Resolving]
  - Jaundice [Recovering/Resolving]
  - Rash maculo-papular [Recovering/Resolving]
  - Prothrombin time shortened [Recovering/Resolving]
  - Pyrexia [Recovering/Resolving]
  - Hepatitis fulminant [Recovering/Resolving]

NARRATIVE: CASE EVENT DATE: 20150508
